FAERS Safety Report 23607921 (Version 1)
Quarter: 2024Q1

REPORT INFORMATION
  Report Type: Spontaneous
  Country: US (occurrence: US)
  Receive Date: 20240307
  Receipt Date: 20240307
  Transmission Date: 20240409
  Serious: Yes (Hospitalization, Other)
  Sender: FDA-Public Use
  Company Number: US-009507513-2403USA000266

PATIENT
  Sex: Female

DRUGS (1)
  1. KEYTRUDA [Suspect]
     Active Substance: PEMBROLIZUMAB
     Indication: Triple negative breast cancer
     Dates: end: 202302

REACTIONS (8)
  - Malignant neoplasm progression [Unknown]
  - Loss of consciousness [Unknown]
  - Seizure [Unknown]
  - Retinal detachment [Unknown]
  - Endocrine disorder [Unknown]
  - Adrenal insufficiency [Unknown]
  - Syncope [Unknown]
  - Dysstasia [Unknown]
